FAERS Safety Report 9288444 (Version 1)
Quarter: 2013Q2

REPORT INFORMATION
  Report Type: Spontaneous
  Country: TR (occurrence: TR)
  Receive Date: 20130514
  Receipt Date: 20130514
  Transmission Date: 20140414
  Serious: Yes (Other)
  Sender: FDA-Public Use
  Company Number: TR-PFIZER INC-2013146316

PATIENT
  Age: 56 Year
  Sex: Female

DRUGS (2)
  1. PREGABALIN [Suspect]
     Indication: PAIN
     Dosage: 300 MG/DAY
  2. MELPHALAN HYDROCHLORIDE [Suspect]
     Indication: CHEMOTHERAPY
     Dosage: 200 MG/M2, UNK

REACTIONS (2)
  - Myoclonic epilepsy [Recovered/Resolved]
  - Status epilepticus [Recovered/Resolved]
